FAERS Safety Report 9596402 (Version 1)
Quarter: 2013Q4

REPORT INFORMATION
  Report Type: Spontaneous
  Country: US (occurrence: US)
  Receive Date: 20131004
  Receipt Date: 20131004
  Transmission Date: 20140711
  Serious: Yes (Other)
  Sender: FDA-Public Use
  Company Number: US-ROXANE LABORATORIES, INC.-2013-RO-01624RO

PATIENT
  Age: 57 Year
  Sex: Female

DRUGS (3)
  1. PREDNISONE [Suspect]
     Indication: RENAL TRANSPLANT
     Dosage: 7.5 MG
  2. MYCOPHENOLATE MOFETIL [Suspect]
     Indication: RENAL TRANSPLANT
     Dosage: 1000 MG
  3. TACROLIMUS [Suspect]
     Indication: RENAL TRANSPLANT
     Dosage: 2 MG

REACTIONS (2)
  - Central nervous system lymphoma [Recovered/Resolved]
  - Normochromic normocytic anaemia [Unknown]
